FAERS Safety Report 24181750 (Version 1)
Quarter: 2024Q3

REPORT INFORMATION
  Report Type: Report from Study
  Country: IT (occurrence: None)
  Receive Date: 20240807
  Receipt Date: 20240807
  Transmission Date: 20241016
  Serious: Yes (Other)
  Sender: ASTRAZENECA
  Company Number: 2021A666555

PATIENT

DRUGS (1)
  1. TAGRISSO [Suspect]
     Active Substance: OSIMERTINIB
     Indication: Non-small cell lung cancer
     Dosage: UNKNOWN
     Route: 048

REACTIONS (4)
  - Toxicity to various agents [Unknown]
  - Drug intolerance [Unknown]
  - Diarrhoea [Unknown]
  - Off label use [Unknown]
